FAERS Safety Report 9207303 (Version 1)
Quarter: 2013Q1

REPORT INFORMATION
  Report Type: Spontaneous
  Country: US (occurrence: None)
  Receive Date: 20120803
  Receipt Date: 20120803
  Transmission Date: 20140127
  Serious: Yes (Disabling)
  Sender: FDA-Public Use
  Company Number: 2011SP051844

PATIENT
  Age: 36 Year
  Sex: Male

DRUGS (1)
  1. INTRON A [Suspect]
     Indication: METASTATIC OCULAR MELANOMA
     Dates: start: 20110912

REACTIONS (3)
  - Weight decreased [None]
  - Vomiting [None]
  - Nausea [None]
